FAERS Safety Report 4949029-5 (Version None)
Quarter: 2006Q1

REPORT INFORMATION
  Report Type: 
  Country: None (occurrence: None)
  Receive Date: 20060321
  Receipt Date: 20060310
  Transmission Date: 20060701
  Serious: Yes (Other)
  Sender: FDA-Public Use
  Company Number: CA-GLAXOSMITHKLINE-A0597219A

PATIENT
  Age: 80 Year
  Sex: Female
  Weight: 45.5 kg

DRUGS (6)
  1. AVANDIA [Suspect]
     Indication: DIABETES MELLITUS NON-INSULIN-DEPENDENT
     Dosage: 4MG PER DAY
     Route: 048
     Dates: start: 20040701
  2. METFORMIN [Concomitant]
     Indication: DIABETES MELLITUS NON-INSULIN-DEPENDENT
     Dosage: 1000MG TWICE PER DAY
     Dates: start: 20000101
  3. DIAMICRON [Concomitant]
     Indication: DIABETES MELLITUS
     Dosage: 60MG PER DAY
     Dates: start: 20000101
  4. ASPIRIN [Concomitant]
     Indication: COAGULOPATHY
     Dosage: 81MG PER DAY
     Dates: start: 20000101
  5. DIOVAN [Concomitant]
     Dosage: 80MG PER DAY
  6. LIPITOR [Concomitant]

REACTIONS (5)
  - DIABETIC RETINOPATHY [None]
  - RETINAL HAEMORRHAGE [None]
  - RETINAL VEIN OCCLUSION [None]
  - VISION BLURRED [None]
  - VITREOUS FLOATERS [None]
